FAERS Safety Report 5443287-9 (Version None)
Quarter: 2007Q3

REPORT INFORMATION
  Report Type: 
  Country: None (occurrence: None)
  Receive Date: 20070830
  Receipt Date: 20070820
  Transmission Date: 20080115
  Serious: Yes (Death, Other)
  Sender: FDA-Public Use
  Company Number: 160308ISR

PATIENT
  Sex: Female

DRUGS (5)
  1. CARBOPLATIN [Suspect]
     Indication: RETINOBLASTOMA BILATERAL
     Dosage: (4800 MG/M2, 8 / CYCLICAL)
  2. ETOPOSIDE [Suspect]
     Indication: RETINOBLASTOMA BILATERAL
     Dosage: (2400 MG/M2, 8 / CYCLICAL)
  3. CYTARABINE [Suspect]
     Indication: RETINOBLASTOMA BILATERAL
     Dosage: (6 / CYCLICAL), (4 / CYCLICAL)
  4. METHOTREXATE [Suspect]
     Indication: RETINOBLASTOMA BILATERAL
     Dosage: (4 / CYCLICAL), (4 / CYCLICAL) INTRATHECAL
     Route: 037
  5. VINCRISTINE [Suspect]
     Indication: RETINOBLASTOMA BILATERAL
     Dosage: (12 MG/M2, 2 / CYCLICAL); (4 / CYCLICAL)

REACTIONS (2)
  - ACUTE MYELOID LEUKAEMIA [None]
  - TREATMENT RELATED SECONDARY MALIGNANCY [None]
